FAERS Safety Report 6616751 (Version 2)
Quarter: 2013Q1

REPORT INFORMATION
  Report Type: Spontaneous
  Country: IT (occurrence: None)
  Receive Date: 20080404
  Receipt Date: 20130115
  Transmission Date: 20140127
  Serious: Yes (Other)
  Sender: FDA-Public Use
  Company Number: 2008AP000751

PATIENT
  Age: 61 Year
  Sex: Male

DRUGS (4)
  1. CARBAMAZEPINE [Suspect]
     Indication: NEURALGIA
  2. LISINOPRIL (LISINOPRIL) [Concomitant]
  3. BACLOFEN [Concomitant]
  4. OXYBUTYNIN (OXYBUTYNIN) [Concomitant]

REACTIONS (4)
  - Drug reaction with eosinophilia and systemic symptoms [None]
  - Eosinophilic oesophagitis [None]
  - Tachycardia [None]
  - Drug reaction with eosinophilia and systemic symptoms [None]
